FAERS Safety Report 4463227-9 (Version None)
Quarter: 2004Q3

REPORT INFORMATION
  Report Type: 
  Country: None (occurrence: None)
  Receive Date: 20040930
  Receipt Date: 20040928
  Transmission Date: 20050211
  Serious: Yes (Other)
  Sender: FDA-Public Use
  Company Number: PHBS2004BR12851

PATIENT
  Age: 75 Year
  Sex: Male
  Weight: 48 kg

DRUGS (4)
  1. EXELON [Suspect]
     Indication: DEMENTIA ALZHEIMER'S TYPE
     Dosage: 3 MG, BID
     Route: 048
     Dates: start: 20040826
  2. EXELON [Suspect]
     Dosage: 9 MG/D
     Route: 048
     Dates: end: 20040830
  3. EXELON [Suspect]
     Dosage: 6 MG/D (4.5 MG + 1.5 MG)
     Route: 048
  4. EXELON [Suspect]
     Dosage: 3 MG, BID
     Route: 048

REACTIONS (3)
  - DIZZINESS [None]
  - LOSS OF CONSCIOUSNESS [None]
  - URINARY INCONTINENCE [None]
